FAERS Safety Report 5796972-3 (Version None)
Quarter: 2008Q2

REPORT INFORMATION
  Report Type: 
  Country: None (occurrence: None)
  Receive Date: 20080618
  Receipt Date: 20070604
  Transmission Date: 20081010
  Serious: Yes (Other)
  Sender: FDA-Public Use
  Company Number: 200711750US

PATIENT
  Age: 60 Year
  Sex: Female

DRUGS (7)
  1. LANTUS [Suspect]
     Indication: TYPE 2 DIABETES MELLITUS
     Dosage: 20 U QPM INJ
     Dates: start: 20070223
  2. LANTUS [Suspect]
     Indication: TYPE 2 DIABETES MELLITUS
     Dosage: 30 U QPM
     Dates: end: 20070427
  3. LANTUS [Suspect]
     Indication: TYPE 2 DIABETES MELLITUS
     Dosage: 40 U QPM
     Dates: start: 20070427
  4. OPTICLIK [Suspect]
     Indication: TYPE 2 DIABETES MELLITUS
     Dates: start: 20070223
  5. CETIRIZINE HYDROCHLORIDE (ZYRTEC /00884302/) [Concomitant]
  6. MOMETASONE FUROATE (NASONEX) [Concomitant]
  7. SALBUTAMOL (PROVENTIL) [Concomitant]

REACTIONS (2)
  - BLOOD GLUCOSE INCREASED [None]
  - HYPERGLYCAEMIA [None]
